FAERS Safety Report 14930772 (Version 2)
Quarter: 2018Q2

REPORT INFORMATION
  Report Type: Report from Study
  Country: None (occurrence: ZA)
  Receive Date: 20180523
  Receipt Date: 20180601
  Transmission Date: 20180711
  Serious: Yes (Hospitalization, Other)
  Sender: FDA-Public Use
  Company Number: ZA-ABBVIE-18K-143-2336723-00

PATIENT
  Age: 39 Year
  Sex: Female

DRUGS (3)
  1. HUMIRA [Suspect]
     Active Substance: ADALIMUMAB
     Indication: RHEUMATOID ARTHRITIS
     Route: 058
     Dates: start: 2016
  2. ACTEMRA [Concomitant]
     Active Substance: TOCILIZUMAB
     Indication: PRODUCT USED FOR UNKNOWN INDICATION
  3. HUMIRA [Suspect]
     Active Substance: ADALIMUMAB
     Route: 058
     Dates: start: 201710, end: 201804

REACTIONS (20)
  - Myelitis transverse [Unknown]
  - Spinal cord ischaemia [Unknown]
  - Osteopenia [Unknown]
  - Pain in jaw [Unknown]
  - Vitamin B12 abnormal [Unknown]
  - Spinal cord infarction [Unknown]
  - Gait disturbance [Unknown]
  - Nuclear magnetic resonance imaging abnormal [Unknown]
  - Peripheral swelling [Unknown]
  - Cerebrovascular accident [Unknown]
  - Affective disorder [Unknown]
  - Escherichia infection [Unknown]
  - Blood thyroid stimulating hormone abnormal [Unknown]
  - Anal incontinence [Unknown]
  - Mobility decreased [Unknown]
  - Neurologic neglect syndrome [Unknown]
  - Transferrin abnormal [Unknown]
  - Beta haemolytic streptococcal infection [Unknown]
  - Vasculitis [Unknown]
  - Gamma-glutamyltransferase abnormal [Unknown]

NARRATIVE: CASE EVENT DATE: 2018
